FAERS Safety Report 5281922-9 (Version None)
Quarter: 2007Q1

REPORT INFORMATION
  Report Type: 
  Country: None (occurrence: None)
  Receive Date: 20061218
  Receipt Date: 20051219
  Transmission Date: 20070707
  Serious: Yes (Other)
  Sender: FDA-Public Use
  Company Number: PI2005-188

PATIENT
  Age: 52 Year
  Sex: Female
  Weight: 70.3075 kg

DRUGS (4)
  1. CHLORAPREP ONE-STEP FREPP [Suspect]
     Indication: PREOPERATIVE CARE
     Dosage: 3-ML, ONCE, TOPICAL
     Route: 061
     Dates: start: 20051003
  2. . [Concomitant]
  3. . [Concomitant]
  4. . [Concomitant]

REACTIONS (1)
  - SKIN IRRITATION [None]
